FAERS Safety Report 21388853 (Version 1)
Quarter: 2022Q3

REPORT INFORMATION
  Report Type: Spontaneous
  Country: US (occurrence: None)
  Receive Date: 20220927
  Receipt Date: 20220927
  Transmission Date: 20221027
  Serious: Yes (Hospitalization)
  Sender: FDA-Public Use
  Company Number: None

PATIENT
  Age: 79 Year
  Sex: Female
  Weight: 70.76 kg

DRUGS (22)
  1. LENALIDOMIDE [Suspect]
     Active Substance: LENALIDOMIDE
     Dosage: OTHER FREQUENCY : 21D ON 7D OFF;?
     Route: 048
  2. ACYCLOVIR [Concomitant]
     Active Substance: ACYCLOVIR
  3. AMLODIPINE [Concomitant]
     Active Substance: AMLODIPINE BESYLATE
  4. BACLOFEN [Concomitant]
     Active Substance: BACLOFEN
  5. CALCIUM CARB-CHOLECALCIFEROL [Concomitant]
  6. CARVEDILOL [Concomitant]
     Active Substance: CARVEDILOL
  7. CRANBERRY [Concomitant]
     Active Substance: CRANBERRY
  8. CYCLOBENZAPRINE [Concomitant]
     Active Substance: CYCLOBENZAPRINE
  9. DICYCLOMINE [Concomitant]
     Active Substance: DICYCLOMINE HYDROCHLORIDE
  10. GAMFIBROZIL [Concomitant]
  11. GLIMEPIRIDE [Concomitant]
     Active Substance: GLIMEPIRIDE
  12. HYDRALAZINE [Concomitant]
     Active Substance: HYDRALAZINE HYDROCHLORIDE
  13. HYDROXYZINE [Concomitant]
     Active Substance: HYDROXYZINE HYDROCHLORIDE
  14. LEVEMIR [Concomitant]
     Active Substance: INSULIN DETEMIR
  15. LOSARTAN [Concomitant]
     Active Substance: LOSARTAN
  16. MELATONIN [Concomitant]
     Active Substance: MELATONIN
  17. NITROFURANTOIN [Concomitant]
     Active Substance: NITROFURANTOIN
  18. NITROGLYCERIN [Concomitant]
     Active Substance: NITROGLYCERIN
  19. ONDANSETRON [Concomitant]
     Active Substance: ONDANSETRON
  20. PROCHLORPERAZINE REPATHA [Concomitant]
  21. VITAMIN D3 [Concomitant]
     Active Substance: CHOLECALCIFEROL
  22. WARFARIN [Concomitant]
     Active Substance: WARFARIN

REACTIONS (2)
  - Peripheral swelling [None]
  - Dyspnoea [None]

NARRATIVE: CASE EVENT DATE: 20220925
